FAERS Safety Report 8528449-6 (Version None)
Quarter: 2012Q3

REPORT INFORMATION
  Report Type: 
  Country: None (occurrence: None)
  Receive Date: 20120723
  Receipt Date: 20120717
  Transmission Date: 20120928
  Serious: No
  Sender: FDA-Public Use
  Company Number: US-009507513-1206USA02415

PATIENT

DRUGS (2)
  1. MAXALT [Suspect]
     Indication: MIGRAINE
     Dosage: UNK UNK, ONCE
     Route: 048
     Dates: start: 20120615, end: 20120615
  2. MAXALT [Suspect]
     Dosage: 10 MG, PRN
     Route: 048
     Dates: start: 20120606

REACTIONS (3)
  - CHEST DISCOMFORT [None]
  - PAIN IN JAW [None]
  - CHEST PAIN [None]
